FAERS Safety Report 8814439 (Version 1)
Quarter: 2012Q4

REPORT INFORMATION
  Report Type: Spontaneous
  Country: US (occurrence: None)
  Receive Date: 20120925
  Receipt Date: 20120925
  Transmission Date: 20130627
  Serious: Yes (Hospitalization)
  Sender: FDA-Public Use
  Company Number: JPI-P-025188

PATIENT
  Age: 69 Year
  Sex: Female

DRUGS (8)
  1. XYREM [Suspect]
     Indication: INSOMNIA
     Route: 048
     Dates: start: 20100903
  2. XYREM [Suspect]
     Indication: INSOMNIA
  3. XYREM [Suspect]
     Indication: INSOMNIA
     Route: 048
  4. METOPROLOL TARTRATE [Concomitant]
  5. METHIMAZOLE [Concomitant]
  6. LISINOPRIL [Concomitant]
  7. CLONIDINE [Concomitant]
  8. HYDRALAZINE [Concomitant]

REACTIONS (3)
  - Atrial fibrillation [None]
  - Cardiac enzymes increased [None]
  - Hyperthyroidism [None]
